FAERS Safety Report 6830581-X (Version None)
Quarter: 2010Q3

REPORT INFORMATION
  Report Type: 
  Country: None (occurrence: None)
  Receive Date: 20100712
  Receipt Date: 20100629
  Transmission Date: 20110219
  Serious: Yes (Hospitalization, Other)
  Sender: FDA-Public Use
  Company Number: CH-ELI_LILLY_AND_COMPANY-CH201007000307

PATIENT
  Sex: Female
  Weight: 59 kg

DRUGS (1)
  1. EFFIENT [Suspect]
     Dosage: UNK, UNKNOWN
     Route: 065

REACTIONS (2)
  - ANGINA UNSTABLE [None]
  - FEMORAL ARTERY OCCLUSION [None]
